FAERS Safety Report 9676669 (Version 1)
Quarter: 2013Q4

REPORT INFORMATION
  Report Type: Spontaneous
  Country: US (occurrence: US)
  Receive Date: 20131107
  Receipt Date: 20131107
  Transmission Date: 20140711
  Serious: Yes (Hospitalization, Other)
  Sender: FDA-Public Use
  Company Number: US-SA-2013SA113407

PATIENT
  Age: 50 Year
  Sex: Female

DRUGS (2)
  1. LANTUS [Suspect]
     Indication: TYPE 1 DIABETES MELLITUS
     Route: 058
  2. NOVOLOG [Concomitant]

REACTIONS (4)
  - Adverse event [Unknown]
  - Neoplasm malignant [Unknown]
  - Speech disorder [Unknown]
  - Visual impairment [Unknown]
